FAERS Safety Report 14980607 (Version 1)
Quarter: 2018Q2

REPORT INFORMATION
  Report Type: Other
  Country: SE (occurrence: SE)
  Receive Date: 20180606
  Receipt Date: 20180606
  Transmission Date: 20180711
  Serious: Yes (Hospitalization)
  Sender: FDA-Public Use
  Company Number: SE-LEADING PHARMA-2049087

PATIENT
  Age: 39 Year
  Sex: Male

DRUGS (1)
  1. LORAZEPAM. [Suspect]
     Active Substance: LORAZEPAM

REACTIONS (11)
  - Hyperosmolar state [Recovered/Resolved]
  - Blood cholesterol increased [Recovered/Resolved]
  - Hypoxia [Recovered/Resolved]
  - Hypercapnia [Recovered/Resolved]
  - Lipids increased [Recovered/Resolved]
  - Weight increased [Recovered/Resolved]
  - Diabetes mellitus [Recovered/Resolved]
  - Hypertriglyceridaemia [Recovered/Resolved]
  - Hyperglycaemia [Recovered/Resolved]
  - Drug interaction [Recovered/Resolved]
  - Diabetic ketoacidosis [Recovered/Resolved]
